FAERS Safety Report 8632363 (Version 2)
Quarter: 2012Q4

REPORT INFORMATION
  Report Type: 
  Country: FR (occurrence: FR)
  Receive Date: 20120625
  Receipt Date: 20121105
  Transmission Date: 20130627
  Serious: Yes (Hospitalization)
  Sender: FDA-Public Use
  Company Number: FR-PFIZER INC-2012148386

PATIENT
  Age: 97 Year
  Sex: Male

DRUGS (7)
  1. CORDARONE [Suspect]
     Indication: ATRIAL FIBRILLATION
     Dosage: 200 mg, 1x/day
     Route: 048
     Dates: start: 2009, end: 20120601
  2. LEVOTHYROX [Concomitant]
     Dosage: UNK
  3. BISOPROLOL [Concomitant]
     Dosage: UNK
  4. TAHOR [Concomitant]
     Dosage: UNK
  5. KARDEGIC [Concomitant]
     Dosage: UNK
  6. PLAVIX [Concomitant]
     Dosage: UNK
  7. FUROSEMIDE [Concomitant]
     Dosage: UNK

REACTIONS (3)
  - Cerebellar ataxia [Not Recovered/Not Resolved]
  - Vitamin D decreased [Unknown]
  - Blood parathyroid hormone increased [Unknown]
